FAERS Safety Report 11521948 (Version 1)
Quarter: 2015Q3

REPORT INFORMATION
  Report Type: Spontaneous
  Country: CH (occurrence: CH)
  Receive Date: 20150918
  Receipt Date: 20150918
  Transmission Date: 20151125
  Serious: Yes (Life-Threatening, Hospitalization, Other)
  Sender: FDA-Public Use
  Company Number: CH-JNJFOC-20150912550

PATIENT
  Age: 85 Year
  Sex: Male

DRUGS (5)
  1. XARELTO [Suspect]
     Active Substance: RIVAROXABAN
     Indication: CEREBROVASCULAR ACCIDENT PROPHYLAXIS
     Route: 048
     Dates: start: 2015, end: 20150903
  2. XARELTO [Suspect]
     Active Substance: RIVAROXABAN
     Indication: ATRIAL FIBRILLATION
     Route: 048
     Dates: start: 2015, end: 20150903
  3. TRIATEC [Concomitant]
     Active Substance: RAMIPRIL
     Route: 065
     Dates: start: 2013
  4. METOPROLOL TARTRATE. [Concomitant]
     Active Substance: METOPROLOL TARTRATE
     Route: 065
     Dates: start: 2013
  5. TOREM [Concomitant]
     Active Substance: TORSEMIDE
     Route: 065
     Dates: start: 2013

REACTIONS (6)
  - Diarrhoea [Recovering/Resolving]
  - Resuscitation [Recovered/Resolved]
  - Shock haemorrhagic [Recovered/Resolved]
  - Overdose [Recovered/Resolved]
  - Haemorrhagic anaemia [Recovering/Resolving]
  - Melaena [Recovered/Resolved]

NARRATIVE: CASE EVENT DATE: 2015
